FAERS Safety Report 4576031-8 (Version None)
Quarter: 2005Q1

REPORT INFORMATION
  Report Type: 
  Country: None (occurrence: None)
  Receive Date: 20050204
  Receipt Date: 20050121
  Transmission Date: 20050727
  Serious: Yes (Other)
  Sender: FDA-Public Use
  Company Number: GB-SHR-03-011660

PATIENT
  Sex: Female

DRUGS (2)
  1. BETAFERON                (INTERFERON BETA 1B) [Suspect]
  2. WARFARIN SODIUM [Concomitant]

REACTIONS (1)
  - HAEMORRHAGE [None]
